FAERS Safety Report 5350529-7 (Version None)
Quarter: 2007Q2

REPORT INFORMATION
  Report Type: 
  Country: None (occurrence: None)
  Receive Date: 20070606
  Receipt Date: 20070511
  Transmission Date: 20071010
  Serious: Yes (Hospitalization)
  Sender: FDA-Public Use
  Company Number: ENT 2007-0052

PATIENT
  Age: 58 Year
  Sex: Male

DRUGS (13)
  1. COMTAN [Suspect]
     Indication: PARKINSON'S DISEASE
     Dosage: 800 MG, 4 IN 1 D, ORAL
     Route: 048
  2. WARFARIN SODIUM [Suspect]
     Indication: THROMBOSIS
     Dosage: SEE IMAGE
     Dates: start: 20070330, end: 20070403
  3. WARFARIN SODIUM [Suspect]
     Indication: THROMBOSIS
     Dosage: SEE IMAGE
     Dates: start: 20070406, end: 20070406
  4. WARFARIN SODIUM [Suspect]
     Indication: THROMBOSIS
     Dosage: SEE IMAGE
     Dates: start: 20070407, end: 20070407
  5. WARFARIN SODIUM [Suspect]
     Indication: THROMBOSIS
     Dosage: SEE IMAGE
     Dates: start: 20070408, end: 20070408
  6. WARFARIN SODIUM [Suspect]
     Indication: THROMBOSIS
     Dosage: SEE IMAGE
     Dates: start: 20070409, end: 20070409
  7. SINEMET [Suspect]
     Indication: PARKINSON'S DISEASE
     Dosage: 25/100; 6,5 TABS DAILY, ORAL
     Route: 048
  8. SINEMET-CR (TABLET) [Suspect]
     Indication: PARKINSON'S DISEASE
     Dosage: 25/100 2 TABS DAILY, ORAL
     Route: 048
  9. TRIHEXYPHENIDYL HCL [Suspect]
     Indication: PARKINSON'S DISEASE
     Dosage: 4 MG, 2 IN 1 D, ORAL
     Route: 048
  10. REQUIP [Concomitant]
  11. CALCIUM CHLORIDE [Concomitant]
  12. VITAMIN CAP [Concomitant]
  13. AMBIEN [Concomitant]

REACTIONS (9)
  - BACK PAIN [None]
  - DISEASE PROGRESSION [None]
  - DRUG INTERACTION [None]
  - INSOMNIA [None]
  - INTERNATIONAL NORMALISED RATIO INCREASED [None]
  - PAIN [None]
  - PARKINSON'S DISEASE [None]
  - RESTLESSNESS [None]
  - THROMBOSIS [None]
